FAERS Safety Report 20085481 (Version 1)
Quarter: 2021Q4

REPORT INFORMATION
  Report Type: Spontaneous
  Country: US (occurrence: None)
  Receive Date: 20211117
  Receipt Date: 20211117
  Transmission Date: 20220303
  Serious: No
  Sender: FDA-Public Use
  Company Number: None

PATIENT
  Sex: Female

DRUGS (1)
  1. EPOGEN [Suspect]
     Active Substance: ERYTHROPOIETIN
     Indication: Chronic kidney disease
     Dosage: FREQUENCY : WEEKLY;?
     Route: 058
     Dates: start: 20201231

REACTIONS (3)
  - Epistaxis [None]
  - Contusion [None]
  - Therapy change [None]
